FAERS Safety Report 8015613-8 (Version None)
Quarter: 2011Q4

REPORT INFORMATION
  Report Type: 
  Country: None (occurrence: None)
  Receive Date: 20111230
  Receipt Date: 20111220
  Transmission Date: 20120403
  Serious: Yes (Other)
  Sender: FDA-Public Use
  Company Number: US-ELI_LILLY_AND_COMPANY-US201004005656

PATIENT
  Sex: Female

DRUGS (9)
  1. LEVO-T [Concomitant]
  2. METOPROLOL TARTRATE [Concomitant]
  3. LEVETIRACETAM [Concomitant]
  4. CALCIUM ACETATE [Concomitant]
  5. FORTEO [Suspect]
     Indication: OSTEOPOROSIS
     Dosage: 20 UG, DAILY (1/D)
     Route: 065
     Dates: start: 20090401
  6. COD LIVER OIL [Concomitant]
  7. FORTEO [Suspect]
     Dosage: 20 UG, QD
  8. GABAPENTIN [Concomitant]
  9. FORTEO [Suspect]
     Dosage: 20 UG, QD

REACTIONS (13)
  - DRUG DOSE OMISSION [None]
  - MUSCLE SPASMS [None]
  - MEDICATION ERROR [None]
  - BACK PAIN [None]
  - FALL [None]
  - UPPER LIMB FRACTURE [None]
  - GROWING PAINS [None]
  - HYPERTENSION [None]
  - PAIN IN EXTREMITY [None]
  - CONSTIPATION [None]
  - BRAIN OPERATION [None]
  - ARTHRALGIA [None]
  - MEMORY IMPAIRMENT [None]
